FAERS Safety Report 4330849-5 (Version None)
Quarter: 2004Q1

REPORT INFORMATION
  Report Type: 
  Country: None (occurrence: None)
  Receive Date: 20040331
  Receipt Date: 20040317
  Transmission Date: 20041129
  Serious: Yes (Other)
  Sender: FDA-Public Use
  Company Number: USA040362251

PATIENT
  Age: 61 Year
  Sex: Female
  Weight: 91 kg

DRUGS (2)
  1. HUMALOG [Suspect]
     Dosage: 35 U/2 DAY
     Dates: start: 20030101
  2. HUMULIN 70/30 [Suspect]

REACTIONS (4)
  - BLINDNESS [None]
  - CATARACT [None]
  - EYE HAEMORRHAGE [None]
  - PHARMACEUTICAL PRODUCT COMPLAINT [None]
